FAERS Safety Report 8591132-5 (Version None)
Quarter: 2012Q3

REPORT INFORMATION
  Report Type: 
  Country: None (occurrence: None)
  Receive Date: 20120813
  Receipt Date: 20120730
  Transmission Date: 20120928
  Serious: Yes (Hospitalization)
  Sender: FDA-Public Use
  Company Number: DE-ROCHE-1039775

PATIENT
  Sex: Female
  Weight: 57 kg

DRUGS (3)
  1. ZELBORAF [Suspect]
     Route: 048
     Dates: start: 20120321
  2. ZELBORAF [Suspect]
     Route: 048
     Dates: start: 20120310
  3. ZELBORAF [Suspect]
     Indication: MALIGNANT MELANOMA
     Route: 048
     Dates: start: 20120113, end: 20120306

REACTIONS (2)
  - VOMITING [None]
  - DRUG PHYSIOLOGIC INCOMPATIBILITY [None]
